FAERS Safety Report 9707113 (Version 1)
Quarter: 2013Q4

REPORT INFORMATION
  Report Type: Spontaneous
  Country: US (occurrence: US)
  Receive Date: 20131125
  Receipt Date: 20131125
  Transmission Date: 20140711
  Serious: No
  Sender: FDA-Public Use
  Company Number: US-PFIZER INC-2013336322

PATIENT
  Sex: Male
  Weight: 95.24 kg

DRUGS (4)
  1. LYRICA [Suspect]
     Indication: PAIN IN EXTREMITY
     Dosage: 75 MG, 2X/DAY
     Dates: start: 2012
  2. NAPROSYN [Concomitant]
     Indication: ARTHRITIS
     Dosage: 220 MG, DAILY
  3. ACETAMINOPHEN [Concomitant]
     Indication: ARTHRITIS
     Dosage: 650 MG, UNK
  4. VITAMIN B6 [Concomitant]
     Indication: ARTHRITIS
     Dosage: UNK

REACTIONS (1)
  - Drug ineffective [Unknown]
